FAERS Safety Report 7350062-7 (Version None)
Quarter: 2011Q1

REPORT INFORMATION
  Report Type: 
  Country: None (occurrence: None)
  Receive Date: 20110314
  Receipt Date: 20110304
  Transmission Date: 20110831
  Serious: Yes (Hospitalization)
  Sender: FDA-Public Use
  Company Number: US-ROCHE-764301

PATIENT
  Sex: Male
  Weight: 52.2 kg

DRUGS (8)
  1. FERROUS SULFATE TAB [Concomitant]
  2. RISPERDONE [Concomitant]
  3. REGLAN [Concomitant]
  4. PREVACID [Concomitant]
  5. COLACE [Concomitant]
  6. LORAZEPAM [Concomitant]
  7. TAMIFLU [Suspect]
     Indication: INFLUENZA
     Route: 050
     Dates: start: 20110303
  8. SENNA [Concomitant]

REACTIONS (1)
  - URINARY TRACT INFECTION [None]
